FAERS Safety Report 8772444 (Version 1)
Quarter: 2012Q4

REPORT INFORMATION
  Report Type: 
  Country: US (occurrence: US)
  Receive Date: 20120905
  Receipt Date: 20120905
  Transmission Date: 20130627
  Serious: No
  Sender: FDA-Public Use
  Company Number: US-B.I. PHARMACEUTICALS,INC./RIDGEFIELD-2012-BP-21164BP

PATIENT
  Sex: Female

DRUGS (15)
  1. SPIRIVA [Suspect]
     Indication: CHRONIC OBSTRUCTIVE PULMONARY DISEASE
     Dosage: 18 mcg
     Route: 055
     Dates: start: 201201
  2. PROAIR [Concomitant]
     Indication: CHRONIC OBSTRUCTIVE PULMONARY DISEASE
     Route: 055
  3. PROAIR [Concomitant]
     Indication: ASTHMA
  4. LEVOTHYROXINE [Concomitant]
     Indication: HYPOTHYROIDISM
     Route: 048
  5. FLONASE [Concomitant]
     Indication: SINUS DISORDER
     Route: 045
  6. TRAZODONE [Concomitant]
     Route: 048
  7. MIRALAX [Concomitant]
     Route: 048
  8. REMERON [Concomitant]
     Route: 048
  9. METHADONE MAINTENANCE [Concomitant]
     Route: 048
  10. SEROQUEL [Concomitant]
     Route: 048
  11. INDERAL [Concomitant]
     Indication: RESTLESS LEGS SYNDROME
     Route: 048
  12. STOOL SOFTENER [Concomitant]
     Route: 048
  13. LIDOCAINE OINTMENT [Concomitant]
     Indication: HAEMORRHOIDS
     Route: 061
  14. MULTI VITAMIN [Concomitant]
     Route: 048
  15. CLONAZEPAM [Concomitant]
     Route: 048

REACTIONS (4)
  - Product quality issue [Recovered/Resolved]
  - Cough [Recovered/Resolved]
  - Product quality issue [Recovered/Resolved]
  - Product quality issue [Recovered/Resolved]
